FAERS Safety Report 16973934 (Version 2)
Quarter: 2020Q1

REPORT INFORMATION
  Report Type: Spontaneous
  Country: PL (occurrence: PL)
  Receive Date: 20191030
  Receipt Date: 20200109
  Transmission Date: 20200409
  Serious: Yes (Hospitalization)
  Sender: FDA-Public Use
  Company Number: PL-TEVA-2019-PL-1129173

PATIENT
  Age: 24 Year
  Sex: Female

DRUGS (3)
  1. METHOTREXATE. [Suspect]
     Active Substance: METHOTREXATE
     Indication: BONE CANCER
     Route: 042
     Dates: start: 20190118, end: 20190118
  2. METHOTREXATE. [Suspect]
     Active Substance: METHOTREXATE
     Indication: CARTILAGE NEOPLASM
     Dosage: 15 G
     Route: 042
     Dates: start: 20190111, end: 20190111
  3. DOXORUBICIN [Suspect]
     Active Substance: DOXORUBICIN
     Route: 042
     Dates: start: 20190125, end: 20190126

REACTIONS (3)
  - Thrombocytopenia [Recovering/Resolving]
  - Agranulocytosis [Recovering/Resolving]
  - Anaemia [Recovering/Resolving]
